FAERS Safety Report 4908424-0 (Version None)
Quarter: 2006Q1

REPORT INFORMATION
  Report Type: 
  Country: None (occurrence: None)
  Receive Date: 20060210
  Receipt Date: 20060105
  Transmission Date: 20060701
  Serious: Yes (Death)
  Sender: FDA-Public Use
  Company Number: US-BRISTOL-MYERS SQUIBB COMPANY-13238134

PATIENT

DRUGS (1)
  1. MONOPRIL [Suspect]

REACTIONS (1)
  - LUNG NEOPLASM MALIGNANT [None]
